FAERS Safety Report 24606008 (Version 5)
Quarter: 2025Q1

REPORT INFORMATION
  Report Type: Report from Study
  Country: US (occurrence: US)
  Receive Date: 20241111
  Receipt Date: 20250213
  Transmission Date: 20250408
  Serious: Yes (Hospitalization, Other)
  Sender: ABBVIE
  Company Number: US-ABBVIE-5995705

PATIENT
  Age: 79 Year
  Sex: Female
  Weight: 65.77 kg

DRUGS (18)
  1. SKYRIZI [Suspect]
     Active Substance: RISANKIZUMAB-RZAA
     Indication: Psoriasis
     Route: 058
     Dates: start: 20240509
  2. SKYRIZI [Suspect]
     Active Substance: RISANKIZUMAB-RZAA
     Route: 058
  3. PROLIA [Concomitant]
     Active Substance: DENOSUMAB
     Indication: Osteopenia
  4. OASIS TEARS [Concomitant]
     Active Substance: GLYCERIN
     Indication: Dry eye
  5. MYRBETRIQ [Concomitant]
     Active Substance: MIRABEGRON
     Indication: Hypertonic bladder
  6. METFORMIN [Concomitant]
     Active Substance: METFORMIN HYDROCHLORIDE
     Indication: Diabetes mellitus
  7. ADVIL [Concomitant]
     Active Substance: IBUPROFEN
     Indication: Pain
  8. PREMARIN [Concomitant]
     Active Substance: ESTROGENS, CONJUGATED
     Indication: Hypertonic bladder
  9. XIIDRA [Concomitant]
     Active Substance: LIFITEGRAST
     Indication: Dry eye
  10. FLUOCINONIDE [Concomitant]
     Active Substance: FLUOCINONIDE
     Indication: Pruritus
  11. OMEPRAZOLE [Concomitant]
     Active Substance: OMEPRAZOLE
     Indication: Gastrooesophageal reflux disease
  12. TUMS [Concomitant]
     Active Substance: CALCIUM CARBONATE
     Indication: Antacid therapy
  13. TYLENOL [Concomitant]
     Active Substance: ACETAMINOPHEN
     Indication: Pain
  14. TRIAMCINOLONE [Concomitant]
     Active Substance: TRIAMCINOLONE
     Indication: Psoriasis
  15. CLARITIN [Concomitant]
     Active Substance: LORATADINE
     Indication: Throat irritation
  16. ALEVE [Concomitant]
     Active Substance: NAPROXEN SODIUM
     Indication: Pain
  17. LOSARTAN [Concomitant]
     Active Substance: LOSARTAN
     Indication: Hypertension
  18. INFLUENZA VIRUS VACCINE [Concomitant]
     Active Substance: INFLUENZA VIRUS VACCINE
     Indication: Immunisation

REACTIONS (10)
  - Periprosthetic metallosis [Recovering/Resolving]
  - Neck pain [Recovered/Resolved]
  - Hip arthroplasty [Recovering/Resolving]
  - Blood glucose increased [Recovered/Resolved]
  - Arthritis [Not Recovered/Not Resolved]
  - Hypotension [Recovered/Resolved]
  - Procedural pain [Recovered/Resolved]
  - Osteoarthritis [Recovering/Resolving]
  - Psoriasis [Unknown]
  - Joint stiffness [Unknown]

NARRATIVE: CASE EVENT DATE: 20240709
